FAERS Safety Report 8546011-6 (Version None)
Quarter: 2012Q3

REPORT INFORMATION
  Report Type: 
  Country: None (occurrence: None)
  Receive Date: 20120727
  Receipt Date: 20111202
  Transmission Date: 20120928
  Serious: No
  Sender: FDA-Public Use
  Company Number: US-ASTRAZENECA-2011SE73088

PATIENT
  Sex: Female

DRUGS (2)
  1. SEROQUEL [Suspect]
     Indication: STRESS
     Dosage: AT NIGHT
     Route: 048
  2. TOPAMAX [Concomitant]

REACTIONS (2)
  - OFF LABEL USE [None]
  - MIGRAINE [None]
